FAERS Safety Report 9896571 (Version 1)
Quarter: 2014Q1

REPORT INFORMATION
  Report Type: Spontaneous
  Country: US (occurrence: US)
  Receive Date: 20140213
  Receipt Date: 20140213
  Transmission Date: 20141002
  Serious: No
  Sender: FDA-Public Use
  Company Number: US-BRISTOL-MYERS SQUIBB COMPANY-19119163

PATIENT
  Age: 37 Year
  Sex: Female
  Weight: 68.03 kg

DRUGS (5)
  1. ABATACEPT SUBQ INJECTION 125MG/ML [Suspect]
     Dosage: FREQ: INJECT 1ML AS DIRECTED EVERY WEEK
     Route: 058
  2. WELLBUTRIN [Concomitant]
     Dosage: TABS
  3. LAMOTRIGINE [Concomitant]
     Dosage: TABS
  4. MULTIVITAMIN [Concomitant]
     Dosage: CAPS
  5. XANAX [Concomitant]
     Dosage: TABS

REACTIONS (2)
  - Musculoskeletal pain [Unknown]
  - Abscess oral [Unknown]
